FAERS Safety Report 6378114-9 (Version None)
Quarter: 2009Q3

REPORT INFORMATION
  Report Type: 
  Country: None (occurrence: None)
  Receive Date: 20090925
  Receipt Date: 20090917
  Transmission Date: 20100115
  Serious: Yes (Hospitalization, Other)
  Sender: FDA-Public Use
  Company Number: US-MERCK-0804USA06244

PATIENT
  Age: 56 Year
  Sex: Female

DRUGS (1)
  1. FOSAMAX [Suspect]
     Indication: OSTEOPOROSIS
     Route: 048
     Dates: start: 20020101, end: 20060407

REACTIONS (20)
  - ABDOMINAL PAIN LOWER [None]
  - CORONARY ARTERY DISEASE [None]
  - DEPRESSION [None]
  - DIARRHOEA [None]
  - DRUG INEFFECTIVE [None]
  - DYSLIPIDAEMIA [None]
  - EAR PAIN [None]
  - GASTROOESOPHAGEAL REFLUX DISEASE [None]
  - HORMONE LEVEL ABNORMAL [None]
  - HYPERTENSION [None]
  - HYPOTHYROIDISM [None]
  - NAUSEA [None]
  - OSTEOMYELITIS [None]
  - OSTEONECROSIS [None]
  - PERIODONTITIS [None]
  - RHEUMATOID ARTHRITIS [None]
  - SINUS BRADYCARDIA [None]
  - TOOTHACHE [None]
  - UTERINE DISORDER [None]
  - VOMITING [None]
